FAERS Safety Report 17509291 (Version 1)
Quarter: 2020Q1

REPORT INFORMATION
  Report Type: Spontaneous
  Country: ES (occurrence: ES)
  Receive Date: 20200306
  Receipt Date: 20200306
  Transmission Date: 20200409
  Serious: Yes (Hospitalization)
  Sender: FDA-Public Use
  Company Number: ES-MYLANLABS-2020M1023001

PATIENT
  Age: 90 Year
  Sex: Female

DRUGS (4)
  1. MIRTAZAPINE. [Suspect]
     Active Substance: MIRTAZAPINE
     Indication: INSOMNIA
     Dosage: 0,5 AL ACOSTARSE,  30 COMPRIMIDOS
     Route: 048
     Dates: start: 20190730, end: 20190818
  2. MYSOLINE [Interacting]
     Active Substance: PRIMIDONE
     Indication: PRODUCT USED FOR UNKNOWN INDICATION
     Dosage: 1-0-1, 100 COMPRIMIDOS
     Route: 048
     Dates: start: 20120629
  3. MORFINA                            /00036301/ [Interacting]
     Active Substance: MORPHINE
     Indication: BACK PAIN
     Dosage: MST 20MG DIA
     Route: 048
     Dates: start: 20190812, end: 20190816
  4. ZYTRAM [Interacting]
     Active Substance: TRAMADOL HYDROCHLORIDE
     Indication: PRODUCT USED FOR UNKNOWN INDICATION
     Dosage: 1-0-1
     Route: 048
     Dates: start: 20171107, end: 20190818

REACTIONS (2)
  - Confusional state [Recovered/Resolved]
  - Drug interaction [Unknown]

NARRATIVE: CASE EVENT DATE: 20190816
